FAERS Safety Report 9748845 (Version 2)
Quarter: 2013Q4

REPORT INFORMATION
  Report Type: Spontaneous
  Country: US (occurrence: US)
  Receive Date: 20131212
  Receipt Date: 20131212
  Transmission Date: 20140711
  Serious: No
  Sender: FDA-Public Use
  Company Number: US-INCYTE CORPORATION-2013IN001104

PATIENT
  Age: 75 Year
  Sex: Male

DRUGS (5)
  1. JAKAFI [Suspect]
     Dosage: 10 MG, QD
     Route: 048
     Dates: start: 20130130
  2. VICODIN [Concomitant]
  3. AMOXICILLIN [Concomitant]
     Dosage: 500 MG, TAB
  4. ERYTHROMYCIN [Concomitant]
     Dosage: 2%, GEL
  5. ERYTHROMYCIN [Concomitant]
     Indication: HORDEOLUM

REACTIONS (3)
  - Dental caries [Unknown]
  - Toothache [Unknown]
  - Infection [Unknown]
